FAERS Safety Report 7723309-2 (Version None)
Quarter: 2011Q3

REPORT INFORMATION
  Report Type: 
  Country: None (occurrence: None)
  Receive Date: 20110901
  Receipt Date: 20110901
  Transmission Date: 20111222
  Serious: No
  Sender: FDA-Public Use
  Company Number: None

PATIENT
  Sex: Female
  Weight: 72.574 kg

DRUGS (1)
  1. CYMBALTA [Suspect]
     Indication: NEUROPATHY PERIPHERAL
     Dosage: ONE CAPSULE
     Route: 048
     Dates: start: 20110708, end: 20110728

REACTIONS (11)
  - DYSURIA [None]
  - PAIN IN EXTREMITY [None]
  - HEAT EXHAUSTION [None]
  - FLUSHING [None]
  - MUSCLE TIGHTNESS [None]
  - ANORGASMIA [None]
  - MYALGIA [None]
  - FEELING HOT [None]
  - DRUG INEFFECTIVE [None]
  - HYPERHIDROSIS [None]
  - MUSCLE SPASMS [None]
